FAERS Safety Report 16143506 (Version 4)
Quarter: 2019Q3

REPORT INFORMATION
  Report Type: Report from Study
  Country: US (occurrence: US)
  Receive Date: 20190401
  Receipt Date: 20190815
  Transmission Date: 20191004
  Serious: Yes (Hospitalization)
  Sender: FDA-Public Use
  Company Number: US-GILEAD-2019-0399184

PATIENT
  Age: 48 Year
  Sex: Male
  Weight: 117.3 kg

DRUGS (20)
  1. TOCILIZUMAB. [Concomitant]
     Active Substance: TOCILIZUMAB
     Dosage: UNK
     Dates: start: 20190321, end: 20190321
  2. ZOVIRAX [Concomitant]
     Active Substance: ACYCLOVIR
     Dosage: 800,MG,DAILY
     Route: 048
     Dates: start: 20190313
  3. AXICABTAGENE CILOLEUCEL [Suspect]
     Active Substance: AXICABTAGENE CILOLEUCEL
     Indication: B-CELL LYMPHOMA
     Dosage: UNK, ONCE
     Route: 042
     Dates: start: 20190314, end: 20190314
  4. MEPRON [Concomitant]
     Active Substance: ATOVAQUONE
     Dosage: 1500,MG,DAILY
     Route: 048
     Dates: start: 20190313, end: 20190325
  5. BENADRYL [Concomitant]
     Active Substance: DIPHENHYDRAMINE HYDROCHLORIDE
     Dosage: 25,MG,OTHER
     Route: 041
     Dates: start: 20190314, end: 20190314
  6. LEVAQUIN [Concomitant]
     Active Substance: LEVOFLOXACIN
     Dosage: 500,MG,DAILY
     Route: 048
     Dates: start: 20190313, end: 20190320
  7. ZYLOPRIM [Concomitant]
     Active Substance: ALLOPURINOL
     Dosage: 300,MG,DAILY
     Route: 048
     Dates: start: 20190313, end: 20190325
  8. KEPPRA [Concomitant]
     Active Substance: LEVETIRACETAM
     Dosage: 1000,MG,DAILY
     Route: 041
     Dates: start: 20190323, end: 20190401
  9. PROTONIX [Concomitant]
     Active Substance: PANTOPRAZOLE SODIUM
     Dosage: 40,MG,DAILY
     Route: 048
     Dates: start: 20190314
  10. DIFLUCAN [Concomitant]
     Active Substance: FLUCONAZOLE
     Dosage: 400,MG,DAILY
     Route: 048
     Dates: start: 20190313, end: 20190325
  11. LOVENOX [LEVOFLOXACIN] [Concomitant]
     Dosage: 40,MG,DAILY
     Route: 058
     Dates: start: 20190313, end: 20190325
  12. CYCLOPHOSPHAMIDE. [Suspect]
     Active Substance: CYCLOPHOSPHAMIDE
     Indication: BONE MARROW CONDITIONING REGIMEN
     Dosage: UNK
     Route: 042
     Dates: start: 20190309, end: 20190311
  13. KEPPRA [Concomitant]
     Active Substance: LEVETIRACETAM
     Dosage: 750,MG,TWICE DAILY
     Route: 048
     Dates: start: 20190313, end: 20190323
  14. ZOFRAN [Concomitant]
     Active Substance: ONDANSETRON HYDROCHLORIDE
     Dosage: 4,MG,DAILY
     Route: 041
     Dates: start: 20190320, end: 20190321
  15. CEFEPIME [Concomitant]
     Active Substance: CEFEPIME HYDROCHLORIDE
     Dosage: 2,G,TWICE DAILY
     Route: 041
     Dates: start: 20190320, end: 20190321
  16. FLUDARABINE [Suspect]
     Active Substance: FLUDARABINE PHOSPHATE
     Indication: BONE MARROW CONDITIONING REGIMEN
     Dosage: UNK
     Route: 042
     Dates: start: 20190309, end: 20190311
  17. TOCILIZUMAB. [Concomitant]
     Active Substance: TOCILIZUMAB
     Dosage: 800,MG,THREE TIMES DAILY
     Route: 041
     Dates: start: 20190321, end: 20190322
  18. SODIUM CHLORIDE. [Concomitant]
     Active Substance: SODIUM CHLORIDE
     Dosage: 500,ML,DAILY
     Route: 041
     Dates: start: 20190313, end: 20190405
  19. POTASSIUM CHLORIDE. [Concomitant]
     Active Substance: POTASSIUM CHLORIDE
     Dosage: 25,OTHER,OTHER
     Route: 041
     Dates: start: 20190313, end: 20190324
  20. CALCIUM GLUCONATE. [Concomitant]
     Active Substance: CALCIUM GLUCONATE
     Dosage: 2,G,AS NECESSARY
     Route: 041
     Dates: start: 20190313, end: 20190405

REACTIONS (1)
  - Rhabdomyolysis [Recovered/Resolved]

NARRATIVE: CASE EVENT DATE: 20190325
